FAERS Safety Report 7525859-0 (Version None)
Quarter: 2011Q2

REPORT INFORMATION
  Report Type: 
  Country: None (occurrence: None)
  Receive Date: 20110606
  Receipt Date: 20110601
  Transmission Date: 20111010
  Serious: Yes (Life-Threatening, Hospitalization)
  Sender: FDA-Public Use
  Company Number: A0926080A

PATIENT
  Age: 4 Year
  Sex: Male
  Weight: 16.2 kg

DRUGS (8)
  1. MERCAPTOPURINE [Suspect]
     Dosage: 60MGM2 CYCLIC
     Route: 048
  2. PEG-ASPARAGINASE [Suspect]
     Route: 030
  3. METHOTREXATE [Suspect]
     Route: 037
  4. NELARABINE [Suspect]
     Dosage: 650MGM2 CYCLIC
     Route: 042
     Dates: start: 20110315
  5. CYTARABINE [Suspect]
     Dosage: 75MGM2 CYCLIC
  6. VINCRISTINE [Suspect]
     Dosage: 1.5MGM2 CYCLIC
     Route: 042
  7. CYCLOPHOSPHAMIDE [Suspect]
     Dosage: 1000MGM2 CYCLIC
     Route: 042
  8. RADIATION [Concomitant]

REACTIONS (4)
  - MUSCULAR WEAKNESS [None]
  - ASPARTATE AMINOTRANSFERASE INCREASED [None]
  - ALANINE AMINOTRANSFERASE INCREASED [None]
  - RHABDOMYOLYSIS [None]
